FAERS Safety Report 23982910 (Version 1)
Quarter: 2024Q2

REPORT INFORMATION
  Report Type: Other
  Country: US (occurrence: US)
  Receive Date: 20240617
  Receipt Date: 20240617
  Transmission Date: 20240715
  Serious: Yes (Other)
  Sender: FDA-Public Use
  Company Number: US-Fagron Sterile Services-2158226

PATIENT
  Age: 70 Year
  Sex: Female
  Weight: 100 kg

DRUGS (1)
  1. CALCIUM CHLORIDE\LIDOCAINE\MAGNESIUM CHLORIDE\PHENYLEPHRINE\POTASSIUM [Suspect]
     Active Substance: CALCIUM CHLORIDE\LIDOCAINE\MAGNESIUM CHLORIDE\PHENYLEPHRINE\POTASSIUM CHLORIDE\SODIUM ACETATE\SODIUM

REACTIONS (1)
  - Adverse reaction [Recovered/Resolved]
